FAERS Safety Report 8197953-5 (Version None)
Quarter: 2012Q1

REPORT INFORMATION
  Report Type: 
  Country: None (occurrence: None)
  Receive Date: 20120309
  Receipt Date: 20120220
  Transmission Date: 20120608
  Serious: No
  Sender: FDA-Public Use
  Company Number: US-AMGEN-USASP2011020815

PATIENT
  Age: 73 Year
  Sex: Male
  Weight: 85.261 kg

DRUGS (12)
  1. FENTANYL [Suspect]
     Dosage: 100 MG, UNK
     Dates: start: 20110301, end: 20110408
  2. TOFRANIL [Concomitant]
  3. LYRICA [Concomitant]
  4. XGEVA [Suspect]
     Indication: METASTASES TO BONE
     Dosage: 120 MG, Q4WK
     Route: 058
     Dates: start: 20110401, end: 20110401
  5. LASIX [Concomitant]
  6. PRILOSEC [Concomitant]
  7. FENTANYL [Suspect]
     Dosage: 50 MG, UNK
     Dates: start: 20110126, end: 20110301
  8. OXYCODONE HCL [Concomitant]
     Dosage: 1 MG, TID
     Dates: start: 20110325
  9. POTASSIUM [Concomitant]
  10. FENTANYL [Concomitant]
  11. IBUPROFEN [Concomitant]
  12. PREDNISONE [Concomitant]

REACTIONS (4)
  - BONE PAIN [None]
  - BLOOD CALCIUM DECREASED [None]
  - BEDRIDDEN [None]
  - FATIGUE [None]
